FAERS Safety Report 5798109-3 (Version None)
Quarter: 2008Q2

REPORT INFORMATION
  Report Type: 
  Country: None (occurrence: None)
  Receive Date: 20080623
  Receipt Date: 20080516
  Transmission Date: 20081010
  Serious: Yes (Life-Threatening)
  Sender: FDA-Public Use
  Company Number: 8032686

PATIENT
  Sex: Male

DRUGS (1)
  1. XYZAL [Suspect]

REACTIONS (1)
  - ANAPHYLACTIC REACTION [None]
